FAERS Safety Report 15215772 (Version 1)
Quarter: 2018Q3

REPORT INFORMATION
  Report Type: Spontaneous
  Country: AR (occurrence: AR)
  Receive Date: 20180730
  Receipt Date: 20180730
  Transmission Date: 20181010
  Serious: No
  Sender: FDA-Public Use
  Company Number: AR-SA-2018SA153011

PATIENT
  Age: 23 Year
  Sex: Female

DRUGS (1)
  1. ARAVA [Suspect]
     Active Substance: LEFLUNOMIDE
     Indication: ANTISYNTHETASE SYNDROME
     Dosage: 20 MG, UNK
     Route: 048
     Dates: end: 20180601

REACTIONS (1)
  - Exposure during pregnancy [Unknown]
